FAERS Safety Report 7930698-2 (Version None)
Quarter: 2011Q4

REPORT INFORMATION
  Report Type: 
  Country: None (occurrence: None)
  Receive Date: 20111117
  Receipt Date: 20111103
  Transmission Date: 20120403
  Serious: Yes (Other)
  Sender: FDA-Public Use
  Company Number: 1100924

PATIENT
  Age: 33 Year
  Sex: Female

DRUGS (17)
  1. METHOTREXATE [Suspect]
     Indication: NATURAL KILLER-CELL LEUKAEMIA
     Dosage: 200 MG/M^2, INTRAVENOUS (NOT OTHERWISE SPECIFIED), 800 MG/M^2, INTRAVENOUS (NOT OTHERWISE SPECIFIED)
     Route: 042
  2. ALEMTUZUMAB) [Suspect]
     Indication: NATURAL KILLER-CELL LEUKAEMIA
     Dosage: 30 MG, SUBCUTANEOUS
     Route: 058
  3. DOXORUBICIN HCL [Suspect]
     Indication: NATURAL KILLER-CELL LEUKAEMIA
     Dosage: 50 MG/M^2, INTRAVENOUS (NOT OTHERWISE SPECIFIED)
     Route: 042
  4. ACETAMINOPHEN [Concomitant]
  5. FILGRASTIM [Concomitant]
  6. LEUCOVORIN CALCIUM [Concomitant]
  7. DEXAMETHASONE [Suspect]
     Indication: NATURAL KILLER-CELL LEUKAEMIA
     Dosage: 40 MG/DAY,
  8. CYTARABINE [Suspect]
     Indication: NATURAL KILLER-CELL LEUKAEMIA
     Dosage: 100 MG, INTRATHECAL
     Route: 039
  9. VINCRISTINE SULFATE [Suspect]
     Indication: NATURAL KILLER-CELL LEUKAEMIA
     Dosage: 1.4 MG/M^2, INTRAVENOUS BOLUS
  10. MESNA [Concomitant]
  11. METHOTREXATE [Suspect]
     Indication: NATURAL KILLER-CELL LEUKAEMIA
     Dosage: 12 MG, INTRATHECAL
     Route: 037
  12. FLUCONAZOLE [Concomitant]
  13. CYTARABINE [Suspect]
     Indication: NATURAL KILLER-CELL LEUKAEMIA
     Dosage: 3 G/M^2 TWICE A DAY, INTRAVENOUS (NOT OTHERWISE SPECIFIED)
     Route: 042
  14. CYCLOPHOSPHAMIDE [Suspect]
     Indication: NATURAL KILLER-CELL LEUKAEMIA
     Dosage: 300 MG/M^2, INTRAVENOUS (NOT OTHERWISE SPECIFIED)
  15. DIPHENHYDRAMINE HCL [Concomitant]
  16. ACYCLOVIR [Concomitant]
  17. SULFAMETHOXAZOLE AND TRIMETHOPRIM [Concomitant]

REACTIONS (1)
  - NEUTROPENIA [None]
